FAERS Safety Report 4927162-1 (Version None)
Quarter: 2006Q1

REPORT INFORMATION
  Report Type: 
  Country: None (occurrence: None)
  Receive Date: 20060222
  Receipt Date: 20060208
  Transmission Date: 20060701
  Serious: Yes (Death)
  Sender: FDA-Public Use
  Company Number: 2006-BP-01485RO

PATIENT
  Age: 26 Year
  Sex: Male
  Weight: 83 kg

DRUGS (7)
  1. LOPERAMIDE HCL [Suspect]
     Indication: DIARRHOEA
     Dosage: PO
     Route: 048
  2. PSEUDOEPHEDRINE HCL [Suspect]
  3. DIPHENHYDRAMINE HCL [Suspect]
  4. ETHANOL (ETHANOL) [Suspect]
  5. LITHIUM CARBONATE [Concomitant]
  6. TRAZODONE HCL [Concomitant]
  7. ARIPIPRAZOLE (ARIPIPRAZOLE) [Concomitant]

REACTIONS (15)
  - ALCOHOL POISONING [None]
  - CALCINOSIS [None]
  - DRUG TOXICITY [None]
  - EXCORIATION [None]
  - GASTRIC DISORDER [None]
  - HEPATITIS [None]
  - HYPERTENSIVE HEART DISEASE [None]
  - INFLAMMATION [None]
  - INSOMNIA [None]
  - LOSS OF CONSCIOUSNESS [None]
  - OESOPHAGITIS [None]
  - SELF-MEDICATION [None]
  - SPLEEN DISORDER [None]
  - SPLENIC GRANULOMA [None]
  - VENTRICULAR HYPERTROPHY [None]
